FAERS Safety Report 9905206 (Version 1)
Quarter: 2014Q1

REPORT INFORMATION
  Report Type: Spontaneous
  Country: IL (occurrence: None)
  Receive Date: 20140211
  Receipt Date: 20140211
  Transmission Date: 20141002
  Serious: Yes (Hospitalization)
  Sender: FDA-Public Use
  Company Number: VAL_02972_2014

PATIENT
  Age: 33 Year
  Sex: Female

DRUGS (4)
  1. METOPROLOL (METOPROLOL-METOPROLOL TARTRATE) [Suspect]
     Indication: PRODUCT USED FOR UNKNOWN INDICATION
  2. FUROSEMIDE (FUROSEMIDE) [Suspect]
     Indication: PRODUCT USED FOR UNKNOWN INDICATION
  3. ENOXAPARIN (ENOXAPARIN) [Suspect]
     Indication: PRODUCT USED FOR UNKNOWN INDICATION
     Route: 058
  4. ASPIRIN [Suspect]

REACTIONS (7)
  - Maternal exposure during pregnancy [None]
  - Cardiac valve replacement complication [None]
  - Tricuspid valve incompetence [None]
  - Haemoglobin decreased [None]
  - Muscle haemorrhage [None]
  - Retroperitoneal haematoma [None]
  - Caesarean section [None]
